FAERS Safety Report 13848661 (Version 1)
Quarter: 2017Q3

REPORT INFORMATION
  Report Type: Spontaneous
  Country: US (occurrence: US)
  Receive Date: 20170809
  Receipt Date: 20170809
  Transmission Date: 20171127
  Serious: No
  Sender: FDA-Public Use
  Company Number: US-AUROBINDO-AUR-APL-2013-02493

PATIENT
  Sex: Male

DRUGS (7)
  1. SIMVASTATIN. [Concomitant]
     Active Substance: SIMVASTATIN
     Indication: PRODUCT USED FOR UNKNOWN INDICATION
     Dosage: UNK UNK,UNK,
     Route: 065
  2. LEVOFLOXACIN. [Suspect]
     Active Substance: LEVOFLOXACIN
     Indication: INFLUENZA
     Dosage: UNK UNK,UNK,,ONCE DAILY
     Route: 065
     Dates: start: 20130102, end: 20130112
  3. AMLODIPINE [Concomitant]
     Active Substance: AMLODIPINE BESYLATE
     Indication: PRODUCT USED FOR UNKNOWN INDICATION
     Dosage: UNK UNK,UNK,
     Route: 065
  4. TRICOR [Concomitant]
     Active Substance: FENOFIBRATE
     Indication: PRODUCT USED FOR UNKNOWN INDICATION
     Dosage: UNK UNK,UNK,
     Route: 065
  5. CARVEDILOL. [Concomitant]
     Active Substance: CARVEDILOL
     Indication: PRODUCT USED FOR UNKNOWN INDICATION
     Dosage: UNK UNK,UNK,
     Route: 065
  6. PLAVIX [Concomitant]
     Active Substance: CLOPIDOGREL BISULFATE
     Indication: PRODUCT USED FOR UNKNOWN INDICATION
     Dosage: UNK UNK,UNK,
     Route: 065
  7. COZAAR [Concomitant]
     Active Substance: LOSARTAN POTASSIUM
     Indication: PRODUCT USED FOR UNKNOWN INDICATION
     Dosage: UNK UNK,UNK,
     Route: 065

REACTIONS (8)
  - Tendon rupture [None]
  - Tendon disorder [Unknown]
  - Upper limb fracture [None]
  - Sleep disorder [Recovering/Resolving]
  - Arthralgia [Recovering/Resolving]
  - Pain in extremity [Recovering/Resolving]
  - Tendon pain [Recovering/Resolving]
  - Fall [Recovering/Resolving]
